FAERS Safety Report 20952428 (Version 4)
Quarter: 2023Q1

REPORT INFORMATION
  Report Type: Spontaneous
  Country: US (occurrence: US)
  Receive Date: 20220613
  Receipt Date: 20230113
  Transmission Date: 20230417
  Serious: No
  Sender: FDA-Public Use
  Company Number: US-BRISTOL-MYERS SQUIBB COMPANY-2022-043005

PATIENT
  Age: 56 Year
  Sex: Female

DRUGS (3)
  1. SPRYCEL [Suspect]
     Active Substance: DASATINIB
     Indication: Chronic myeloid leukaemia
     Route: 048
     Dates: start: 20220428
  2. SPRYCEL [Suspect]
     Active Substance: DASATINIB
     Route: 048
     Dates: start: 20211102
  3. SPRYCEL [Suspect]
     Active Substance: DASATINIB
     Dosage: ONGOING
     Route: 048
     Dates: start: 20220429

REACTIONS (2)
  - Pain [Unknown]
  - Chest pain [Unknown]
